FAERS Safety Report 7402543-5 (Version None)
Quarter: 2011Q2

REPORT INFORMATION
  Report Type: 
  Country: None (occurrence: None)
  Receive Date: 20110408
  Receipt Date: 20110329
  Transmission Date: 20111010
  Serious: No
  Sender: FDA-Public Use
  Company Number: PHFR2010GB01340

PATIENT
  Sex: Female

DRUGS (2)
  1. TEGRETOL [Suspect]
     Indication: EPILEPSY
     Dosage: 15 ML MORNING + 20 ML EVENING
     Route: 048
  2. TEGRETOL [Suspect]
     Dosage: 15 ML MORNING + 20 ML EVENING
     Route: 048

REACTIONS (3)
  - NAUSEA [None]
  - VOMITING [None]
  - CONVULSION [None]
